FAERS Safety Report 24185661 (Version 1)
Quarter: 2024Q3

REPORT INFORMATION
  Report Type: Spontaneous
  Country: US (occurrence: US)
  Receive Date: 20240807
  Receipt Date: 20240807
  Transmission Date: 20241017
  Serious: Yes (Disabling)
  Sender: RIGEL PHARMACEUTICALS
  Company Number: US-RIGEL Pharmaceuticals, INC-20240700098

PATIENT
  Sex: Male

DRUGS (1)
  1. TAVALISSE [Suspect]
     Active Substance: FOSTAMATINIB
     Indication: Immune thrombocytopenia
     Dosage: 150 MG, BID
     Route: 048

REACTIONS (3)
  - Blindness [Unknown]
  - Disability [Unknown]
  - Insulin therapy [Unknown]
